FAERS Safety Report 24416288 (Version 1)
Quarter: 2024Q4

REPORT INFORMATION
  Report Type: Spontaneous
  Country: US (occurrence: None)
  Receive Date: 20241008
  Receipt Date: 20241008
  Transmission Date: 20250115
  Serious: Yes (Death)
  Sender: Public
  Company Number: None

PATIENT
  Age: 75 Year
  Sex: Female
  Weight: 56.8 kg

DRUGS (8)
  1. VERZENIO [Suspect]
     Active Substance: ABEMACICLIB
     Dosage: FREQUENCY : TWICE A DAY;?
     Route: 048
     Dates: start: 20230223
  2. CALCIUM [Suspect]
     Active Substance: CALCIUM
  3. LINZESS [Concomitant]
  4. OXYCODONE [Concomitant]
  5. PROLIA [Concomitant]
  6. PROMETHAZINE [Concomitant]
  7. SODIUM CHLORIDE [Concomitant]
  8. PANTOPRAZOLE [Concomitant]

REACTIONS (1)
  - Death [None]
